FAERS Safety Report 7844573-5 (Version None)
Quarter: 2011Q4

REPORT INFORMATION
  Report Type: 
  Country: None (occurrence: None)
  Receive Date: 20111025
  Receipt Date: 20111012
  Transmission Date: 20120403
  Serious: Yes (Hospitalization, Other)
  Sender: FDA-Public Use
  Company Number: US-BAYER-2011-003043

PATIENT
  Age: 25 Year
  Sex: Female
  Weight: 68.027 kg

DRUGS (7)
  1. YAZ [Suspect]
     Indication: CONTRACEPTION
     Dosage: UNK
     Dates: start: 20070208, end: 20070808
  2. MULTI-VITAMIN [Concomitant]
     Dosage: UNK
     Dates: start: 20050101
  3. ASCORBIC ACID [Concomitant]
     Dosage: UNK UNK, PRN
  4. NSAID'S [Concomitant]
     Dosage: UNK UNK, PRN
  5. YAZ [Suspect]
     Indication: PREMENSTRUAL SYNDROME
     Dosage: UNK
     Dates: start: 20070501, end: 20070808
  6. YASMIN [Suspect]
     Indication: CONTRACEPTION
     Dosage: UNK
     Dates: start: 20051219, end: 20070208
  7. YASMIN [Suspect]
     Indication: PREMENSTRUAL SYNDROME
     Dosage: UNK
     Dates: start: 20051219, end: 20070501

REACTIONS (3)
  - HEADACHE [None]
  - TRANSVERSE SINUS THROMBOSIS [None]
  - PAIN [None]
